FAERS Safety Report 8601223-8 (Version None)
Quarter: 2012Q3

REPORT INFORMATION
  Report Type: 
  Country: None (occurrence: None)
  Receive Date: 20120817
  Receipt Date: 20120810
  Transmission Date: 20120928
  Serious: No
  Sender: FDA-Public Use
  Company Number: PHEH2012US015836

PATIENT
  Sex: Male

DRUGS (5)
  1. MULTI-VITAMINS [Concomitant]
  2. CARDIZEM [Concomitant]
  3. TASIGNA [Suspect]
     Indication: LEUKAEMIA
     Dosage: 300 MG, BID
     Route: 048
     Dates: start: 20100101
  4. LIPITOR [Concomitant]
  5. DIGOXIN [Concomitant]

REACTIONS (2)
  - HEAD INJURY [None]
  - FALL [None]
